FAERS Safety Report 4274591-8 (Version None)
Quarter: 2004Q1

REPORT INFORMATION
  Report Type: 
  Country: None (occurrence: None)
  Receive Date: 20040115
  Receipt Date: 20040105
  Transmission Date: 20041129
  Serious: Yes (Life-Threatening, Other)
  Sender: FDA-Public Use
  Company Number: SEWYE467116DEC03

PATIENT
  Sex: Male

DRUGS (1)
  1. EFFEXOR [Suspect]
     Dosage: 225 MG 1X PER 1 DAY
     Route: 048
     Dates: start: 20021001

REACTIONS (5)
  - DYSKINESIA [None]
  - MATERNAL DRUGS AFFECTING FOETUS [None]
  - MYOCLONUS [None]
  - NEONATAL DISORDER [None]
  - TREMOR NEONATAL [None]
